FAERS Safety Report 6861541-0 (Version None)
Quarter: 2010Q3

REPORT INFORMATION
  Report Type: 
  Country: None (occurrence: None)
  Receive Date: 20100721
  Receipt Date: 20100713
  Transmission Date: 20110219
  Serious: Yes (Death, Other)
  Sender: FDA-Public Use
  Company Number: JP-BAYER-200914309BYL

PATIENT
  Age: 75 Year
  Sex: Male
  Weight: 52 kg

DRUGS (12)
  1. NEXAVAR [Suspect]
     Indication: HEPATIC NEOPLASM MALIGNANT
     Dosage: UNIT DOSE: 200 MG
     Route: 048
     Dates: start: 20091110, end: 20091124
  2. NEXAVAR [Suspect]
     Dosage: UNIT DOSE: 200 MG
     Route: 048
     Dates: start: 20100106, end: 20100122
  3. NEXAVAR [Suspect]
     Dosage: UNIT DOSE: 200 MG
     Route: 048
     Dates: start: 20091125, end: 20091216
  4. NEXAVAR [Suspect]
     Dosage: TOTAL DAILY DOSE: 800 MG  UNIT DOSE: 200 MG
     Route: 048
     Dates: start: 20090824, end: 20091102
  5. LOXONIN [Suspect]
     Indication: BACK PAIN
     Dosage: UNIT DOSE: 60 MG
     Route: 048
  6. NORVASC [Concomitant]
     Dosage: UNIT DOSE: 2.5 MG
     Route: 048
  7. FERROMIA [Concomitant]
     Dosage: UNIT DOSE: 50 MG
     Route: 048
  8. MAGMITT [Concomitant]
     Route: 048
  9. SELBEX [Concomitant]
     Dosage: UNIT DOSE: 500 MG
     Route: 048
  10. ETIZOLAM [Concomitant]
     Indication: INSOMNIA
     Route: 048
  11. ADONA [Concomitant]
     Dosage: UNIT DOSE: 30 MG
     Route: 048
  12. HOCHU-EKKI-TO [Concomitant]
     Indication: MALAISE
     Dosage: UNIT DOSE: 2.5 G
     Route: 048

REACTIONS (4)
  - ANAEMIA [None]
  - GASTRIC ULCER [None]
  - HEPATIC NEOPLASM MALIGNANT [None]
  - PLATELET COUNT DECREASED [None]
